FAERS Safety Report 14014472 (Version 1)
Quarter: 2017Q3

REPORT INFORMATION
  Report Type: Spontaneous
  Country: US (occurrence: None)
  Receive Date: 20170926
  Receipt Date: 20170926
  Transmission Date: 20171128
  Serious: Yes (Hospitalization)
  Sender: FDA-Public Use
  Company Number: None

PATIENT
  Age: 71 Year
  Sex: Female

DRUGS (9)
  1. LEVOTHYROXINE. [Concomitant]
     Active Substance: LEVOTHYROXINE
  2. PREDNISONE. [Concomitant]
     Active Substance: PREDNISONE
  3. VITAMIN B12 [Concomitant]
     Active Substance: CYANOCOBALAMIN
  4. IBRANCE [Suspect]
     Active Substance: PALBOCICLIB
     Indication: BREAST CANCER
     Dosage: 100MG EVERY DAY FOR 21DAYS ORAL
     Route: 048
     Dates: start: 20160811, end: 20170914
  5. VITAMIN D [Concomitant]
     Active Substance: CHOLECALCIFEROL
  6. BISOPROL [Concomitant]
  7. XGEVA [Concomitant]
     Active Substance: DENOSUMAB
  8. ATORVASTATIN [Concomitant]
     Active Substance: ATORVASTATIN
  9. LETROZOLE. [Concomitant]
     Active Substance: LETROZOLE

REACTIONS (2)
  - Hospitalisation [None]
  - Therapy cessation [None]

NARRATIVE: CASE EVENT DATE: 20170901
